FAERS Safety Report 22344339 (Version 1)
Quarter: 2023Q2

REPORT INFORMATION
  Report Type: Spontaneous
  Country: BR (occurrence: BR)
  Receive Date: 20230519
  Receipt Date: 20230519
  Transmission Date: 20230722
  Serious: Yes (Death)
  Sender: FDA-Public Use
  Company Number: BR-Atnahs Limited-ATNAHS20230501509

PATIENT
  Age: 86 Year
  Sex: Male

DRUGS (1)
  1. VALIUM [Suspect]
     Active Substance: DIAZEPAM
     Indication: Product used for unknown indication
     Dosage: PATIENT USED VALIUM FOR A LONG TIME, BUT COULD NOT SAY WHETHER HE WAS USING IT AT THE TIME OF DEA...

REACTIONS (1)
  - Dementia Alzheimer^s type [Fatal]
